FAERS Safety Report 13272738 (Version 1)
Quarter: 2017Q1

REPORT INFORMATION
  Report Type: Spontaneous
  Country: US (occurrence: US)
  Receive Date: 20170224
  Receipt Date: 20170224
  Transmission Date: 20170428
  Serious: Yes (Hospitalization)
  Sender: FDA-Public Use
  Company Number: None

PATIENT
  Age: 58 Year
  Sex: Female

DRUGS (1)
  1. POMALYST [Suspect]
     Active Substance: POMALIDOMIDE
     Indication: PLASMA CELL MYELOMA
     Route: 048
     Dates: start: 20170130

REACTIONS (5)
  - Hypothyroidism [None]
  - Acute kidney injury [None]
  - Mental status changes [None]
  - Ataxia [None]
  - Hypokalaemia [None]

NARRATIVE: CASE EVENT DATE: 20170209
